FAERS Safety Report 4352165-8 (Version None)
Quarter: 2004Q2

REPORT INFORMATION
  Report Type: 
  Country: None (occurrence: None)
  Receive Date: 20040428
  Receipt Date: 20040414
  Transmission Date: 20050107
  Serious: No
  Sender: FDA-Public Use
  Company Number: 02100-USA-04-0187

PATIENT

DRUGS (4)
  1. PLETAL [Suspect]
     Indication: PROPHYLAXIS
     Dosage: 100 MG BID ORAL
     Route: 048
  2. PLETAL [Suspect]
     Indication: STENT OCCLUSION
     Dosage: 100 MG BID ORAL
     Route: 048
  3. ASPIRIN [Suspect]
     Indication: PROPHYLAXIS
     Dosage: 200 MG QD ORAL
     Route: 048
  4. ASPIRIN [Suspect]
     Indication: STENT OCCLUSION
     Dosage: 200 MG QD ORAL
     Route: 048

REACTIONS (1)
  - STENT OCCLUSION [None]
